FAERS Safety Report 18354308 (Version 8)
Quarter: 2021Q2

REPORT INFORMATION
  Report Type: Report from Study
  Country: JP (occurrence: JP)
  Receive Date: 20201007
  Receipt Date: 20210629
  Transmission Date: 20210717
  Serious: Yes (Hospitalization)
  Sender: FDA-Public Use
  Company Number: JP-ASTELLAS-2018JP012099

PATIENT
  Age: 76 Year
  Sex: Male
  Weight: 57 kg

DRUGS (10)
  1. FENAZOL [Concomitant]
     Active Substance: FLUFENAMIC ACID
     Indication: DERMATITIS ALLERGIC
     Dosage: ADEQUATE DOSE, AS NEEDED
     Route: 061
     Dates: start: 20121213
  2. ENZALUTAMIDE [Suspect]
     Active Substance: ENZALUTAMIDE
     Indication: HORMONE-DEPENDENT PROSTATE CANCER
     Route: 048
     Dates: start: 20171104
  3. ENZALUTAMIDE [Suspect]
     Active Substance: ENZALUTAMIDE
     Dosage: 80 MG/DAY, UNKNOWN FREQ.
     Route: 048
     Dates: start: 20181204
  4. DENOTAS [Concomitant]
     Active Substance: CALCIUM CARBONATE\CHOLECALCIFEROL\MAGNESIUM CARBONATE
     Indication: PROPHYLAXIS
     Dosage: 1 TABLET, ONCE DAILY
     Route: 048
     Dates: start: 20171016
  5. LEUPLIN [Concomitant]
     Active Substance: LEUPROLIDE ACETATE
     Indication: HORMONE-DEPENDENT PROSTATE CANCER
     Dosage: 22.5 MG, EVERY 24 WEEKS
     Route: 058
     Dates: start: 20171130
  6. KINDAVATE [Concomitant]
     Active Substance: CLOBETASONE BUTYRATE
     Indication: DERMATITIS ALLERGIC
     Dosage: ADEQUATE DOSE, AS NEEDED
     Route: 061
     Dates: start: 20121213
  7. PRALIA [Concomitant]
     Active Substance: DENOSUMAB
     Indication: PROPHYLAXIS
     Dosage: 60 MG, EVERY 6 MONTHS
     Route: 058
     Dates: start: 20171016
  8. KEISHIBUKURYOGAN [Concomitant]
     Active Substance: HERBALS
     Indication: HOT FLUSH
     Route: 048
     Dates: start: 20180327
  9. URIEF [Concomitant]
     Active Substance: SILODOSIN
     Indication: BENIGN PROSTATIC HYPERPLASIA
     Route: 048
     Dates: start: 20141211
  10. BILANOA [Concomitant]
     Active Substance: BILASTINE
     Indication: DERMATITIS ALLERGIC
     Route: 048
     Dates: start: 20171207

REACTIONS (1)
  - Clavicle fracture [Recovering/Resolving]

NARRATIVE: CASE EVENT DATE: 20180621
